FAERS Safety Report 21995378 (Version 1)
Quarter: 2023Q1

REPORT INFORMATION
  Report Type: Spontaneous
  Country: US (occurrence: None)
  Receive Date: 20230213
  Receipt Date: 20230213
  Transmission Date: 20230418
  Serious: Yes (Hospitalization)
  Sender: FDA-Public Use
  Company Number: None

PATIENT
  Sex: Male

DRUGS (1)
  1. TESTOPEL [Suspect]
     Active Substance: TESTOSTERONE
     Indication: Testicular failure
     Dosage: OTHER FREQUENCY : EVERY 3 MONTHS;?IMPLANT 10 PELLETS (750 MG) UNDER THE SKIN EVERY 3 MONTHS?
     Dates: start: 20190523

REACTIONS (1)
  - Hospitalisation [None]
